FAERS Safety Report 9911559 (Version 3)
Quarter: 2014Q1

REPORT INFORMATION
  Report Type: Report from Study
  Country: AU (occurrence: AU)
  Receive Date: 20140219
  Receipt Date: 20140312
  Transmission Date: 20141002
  Serious: Yes (Other)
  Sender: FDA-Public Use
  Company Number: PHHY2013AU054990

PATIENT
  Age: 83 Year
  Sex: Female

DRUGS (3)
  1. ACLASTA [Suspect]
     Dosage: 5 MG
     Route: 042
     Dates: start: 20091218
  2. ACLASTA [Suspect]
     Dosage: 5 MG
     Route: 042
     Dates: start: 20110503
  3. ACLASTA [Suspect]
     Dosage: 5 MG
     Route: 042
     Dates: start: 20120615

REACTIONS (11)
  - Lower respiratory tract infection [Unknown]
  - C-reactive protein increased [Unknown]
  - Anion gap increased [Unknown]
  - Blood urea increased [Unknown]
  - Blood calcium increased [Unknown]
  - Amylase increased [Unknown]
  - Blood potassium decreased [Unknown]
  - Gamma-glutamyltransferase increased [Unknown]
  - Blood bicarbonate increased [Unknown]
  - Blood phosphorus decreased [Unknown]
  - Blood cholesterol increased [Unknown]
